FAERS Safety Report 20249833 (Version 1)
Quarter: 2021Q4

REPORT INFORMATION
  Report Type: Spontaneous
  Country: DE (occurrence: DE)
  Receive Date: 20211229
  Receipt Date: 20211229
  Transmission Date: 20220303
  Serious: Yes (Hospitalization)
  Sender: FDA-Public Use
  Company Number: DE-ADRED-07478-01

PATIENT
  Age: 70 Year
  Sex: Male
  Weight: 120 kg

DRUGS (14)
  1. TORSEMIDE [Interacting]
     Active Substance: TORSEMIDE
     Dosage: 10 MILLIGRAM DAILY; 1-0-0-0
     Route: 048
  2. METFORMIN [Interacting]
     Active Substance: METFORMIN HYDROCHLORIDE
     Dosage: 1 DOSAGE FORMS DAILY; 1000 MG, 0.5-0-0.5-0
     Route: 048
  3. ALLOPURINOL [Interacting]
     Active Substance: ALLOPURINOL
     Dosage: .5 DOSAGE FORMS DAILY; 300 MG, 0.5-0-0-0
     Route: 048
  4. XIPAMIDE [Interacting]
     Active Substance: XIPAMIDE
     Dosage: .5 DOSAGE FORMS DAILY; 20 MG, 0.5-0-0-0
     Route: 048
  5. CANDESARTAN [Interacting]
     Active Substance: CANDESARTAN
     Dosage: 1 DOSAGE FORMS DAILY; 16 MG, 0.5-0-0.5-0
     Route: 048
  6. DICLOFENAC [Interacting]
     Active Substance: DICLOFENAC
     Dosage: 150 MILLIGRAM DAILY; 1-0-1-0
     Route: 048
  7. TAMSULOSIN [Concomitant]
     Active Substance: TAMSULOSIN
     Dosage: .4 MILLIGRAM DAILY; 1-0-0-0
     Route: 048
  8. ASPIRIN [Concomitant]
     Active Substance: ASPIRIN
     Dosage: 100 MILLIGRAM DAILY; 1-0-0-0
     Route: 048
  9. HOPS\MELISSA OFFICINALIS\VALERIAN EXTRACT [Concomitant]
     Active Substance: HOPS\MELISSA OFFICINALIS\VALERIAN EXTRACT
     Dosage: 3 DOSAGE FORMS DAILY; 75|23|45 MG, 1-1-1-0; SEDACUR FORTE CALMING DRAGEES
     Route: 048
  10. ROSUVASTATIN [Concomitant]
     Active Substance: ROSUVASTATIN
     Dosage: .5 DOSAGE FORMS DAILY; 10 MG, 0-0-0.5-0
     Route: 048
  11. APIXABAN [Concomitant]
     Active Substance: APIXABAN
     Dosage: 10 MILLIGRAM DAILY; 1-0-1-0
     Route: 048
  12. Potassium / magnesium [Concomitant]
     Dosage: 2 DOSAGE FORMS DAILY; 1-0-1-0
     Route: 048
  13. METOPROLOL [Concomitant]
     Active Substance: METOPROLOL
     Dosage: 47.5 MG, 1-0-0.5-0
     Route: 048
  14. METAMIZOL [Concomitant]
     Active Substance: METAMIZOLE SODIUM
     Dosage: 2000 MILLIGRAM DAILY; 1-1-1-1
     Route: 048

REACTIONS (4)
  - Labelled drug-drug interaction medication error [Unknown]
  - Tachycardia [Unknown]
  - Product prescribing error [Unknown]
  - Contraindicated product administered [Unknown]
